FAERS Safety Report 8536758-X (Version None)
Quarter: 2012Q3

REPORT INFORMATION
  Report Type: 
  Country: None (occurrence: None)
  Receive Date: 20120725
  Receipt Date: 20120713
  Transmission Date: 20120928
  Serious: Yes (Hospitalization)
  Sender: FDA-Public Use
  Company Number: AU-SANOFI-AVENTIS-2012SA044076

PATIENT
  Age: 68 Year
  Sex: Male
  Weight: 120 kg

DRUGS (8)
  1. CABAZITAXEL [Suspect]
     Route: 042
     Dates: start: 20120612, end: 20120612
  2. ACETAMINOPHEN [Concomitant]
     Route: 048
     Dates: start: 20080101
  3. CABAZITAXEL [Suspect]
     Indication: PROSTATE CANCER METASTATIC
     Route: 042
     Dates: start: 20120501, end: 20120501
  4. ASPIRIN [Concomitant]
     Route: 048
     Dates: start: 20110901
  5. ATENOLOL [Concomitant]
     Route: 048
     Dates: start: 20110901
  6. FRUSEMIDE [Concomitant]
     Route: 048
     Dates: start: 20110901
  7. PREDNISONE [Suspect]
     Indication: PROSTATE CANCER METASTATIC
     Route: 048
     Dates: start: 20120501, end: 20120612
  8. AMIODARONE HYDROCHLORIDE [Concomitant]
     Route: 048
     Dates: start: 20110901

REACTIONS (1)
  - CHOLECYSTITIS [None]
